FAERS Safety Report 25412838 (Version 3)
Quarter: 2025Q3

REPORT INFORMATION
  Report Type: Report from Study
  Country: US (occurrence: US)
  Receive Date: 20250609
  Receipt Date: 20250812
  Transmission Date: 20251020
  Serious: Yes (Other)
  Sender: UCB
  Company Number: US-UCBSA-2025033820

PATIENT
  Age: 6 Year
  Sex: Female
  Weight: 15.9 kg

DRUGS (3)
  1. FINTEPLA [Suspect]
     Active Substance: FENFLURAMINE
     Indication: Lennox-Gastaut syndrome
     Dosage: 3 MILLILITER, 2X/DAY (BID)/0.83 MG/KG/DAY/13.2 MILLIGRAMS PER DAY
     Dates: start: 20230511
  2. FINTEPLA [Suspect]
     Active Substance: FENFLURAMINE
     Dates: start: 20240404
  3. KEPPRA [Concomitant]
     Active Substance: LEVETIRACETAM
     Indication: Epilepsy
     Dosage: 850 MILLIGRAM, 2X/DAY (BID)
     Dates: start: 20230418

REACTIONS (1)
  - Tricuspid valve incompetence [Not Recovered/Not Resolved]

NARRATIVE: CASE EVENT DATE: 20250513
